FAERS Safety Report 9341210 (Version 1)
Quarter: 2013Q2

REPORT INFORMATION
  Report Type: Spontaneous
  Country: DE (occurrence: DE)
  Receive Date: 20130611
  Receipt Date: 20130611
  Transmission Date: 20140414
  Serious: Yes (Hospitalization, Disabling)
  Sender: FDA-Public Use
  Company Number: DE-ROCHE-1205390

PATIENT
  Age: 75 Year
  Sex: Female
  Weight: 70 kg

DRUGS (6)
  1. RITUXIMAB [Suspect]
     Indication: RHEUMATOID ARTHRITIS
     Route: 042
     Dates: start: 201205, end: 201301
  2. METHOTREXATE [Suspect]
     Indication: RHEUMATOID ARTHRITIS
     Route: 048
     Dates: start: 201205, end: 201303
  3. PREDNISOLON [Concomitant]
     Indication: RHEUMATOID ARTHRITIS
     Route: 048
  4. RAMIPRIL [Concomitant]
     Indication: HYPERTENSION
     Route: 048
  5. L-THYROXIN [Concomitant]
     Indication: HYPOTHYROIDISM
     Route: 048
  6. TORASEMIDA [Concomitant]
     Indication: HYPERTENSION
     Route: 048

REACTIONS (4)
  - Hepatitis E [Not Recovered/Not Resolved]
  - Hepatic failure [Recovered/Resolved]
  - Hepatitis E [Recovered/Resolved]
  - Hepatitis E [Not Recovered/Not Resolved]
